FAERS Safety Report 4462817-7 (Version None)
Quarter: 2004Q3

REPORT INFORMATION
  Report Type: 
  Country: None (occurrence: None)
  Receive Date: 20040929
  Receipt Date: 20040917
  Transmission Date: 20050211
  Serious: Yes (Hospitalization)
  Sender: FDA-Public Use
  Company Number: 04-09-1321

PATIENT
  Age: 65 Year
  Sex: Male
  Weight: 119 kg

DRUGS (4)
  1. METFORMIN HCL [Suspect]
     Indication: DIABETES MELLITUS
     Dosage: 850 MG TDS ORAL
     Route: 048
     Dates: start: 20000404, end: 20011122
  2. ENALAPRIL [Concomitant]
  3. GINKGO BILOBA [Concomitant]
  4. CO-DODAMOL [Concomitant]

REACTIONS (3)
  - ANAEMIA HAEMOLYTIC AUTOIMMUNE [None]
  - BLOOD IMMUNOGLOBULIN G INCREASED [None]
  - COOMBS POSITIVE HAEMOLYTIC ANAEMIA [None]
